FAERS Safety Report 17418137 (Version 1)
Quarter: 2020Q1

REPORT INFORMATION
  Report Type: Spontaneous
  Country: US (occurrence: US)
  Receive Date: 20200214
  Receipt Date: 20200214
  Transmission Date: 20200409
  Serious: Yes (Death)
  Sender: FDA-Public Use
  Company Number: None

PATIENT
  Age: 77 Year
  Weight: 68.4 kg

DRUGS (23)
  1. PACLITAXEL. [Suspect]
     Active Substance: PACLITAXEL
     Indication: LUNG NEOPLASM
     Dosage: ?          OTHER FREQUENCY:WEEKLY;?
     Route: 042
     Dates: start: 20200208, end: 20200208
  2. TUMS [Concomitant]
     Active Substance: CALCIUM CARBONATE
  3. ALLOPURINOL. [Concomitant]
     Active Substance: ALLOPURINOL
  4. AMLODIPINE [Concomitant]
     Active Substance: AMLODIPINE BESYLATE
  5. GLUCAGON. [Concomitant]
     Active Substance: GLUCAGON
  6. IPRATOPIUM/ATROPINE [Concomitant]
  7. BEIACODYL [Concomitant]
  8. BENADRYL [Concomitant]
     Active Substance: DIPHENHYDRAMINE HYDROCHLORIDE
  9. ATENOLOL. [Concomitant]
     Active Substance: ATENOLOL
  10. ELIQUIS [Concomitant]
     Active Substance: APIXABAN
  11. ASPIRIN. [Concomitant]
     Active Substance: ASPIRIN
  12. FOLIC ACID. [Concomitant]
     Active Substance: FOLIC ACID
  13. LANTUS [Concomitant]
     Active Substance: INSULIN GLARGINE
  14. LATANOPROST. [Concomitant]
     Active Substance: LATANOPROST
  15. CERTA-VITE [Concomitant]
  16. MINERAL OIL. [Concomitant]
     Active Substance: MINERAL OIL
  17. COMBIGAN [Concomitant]
     Active Substance: BRIMONIDINE TARTRATE\TIMOLOL MALEATE
  18. FERROUS SULFATE. [Concomitant]
     Active Substance: FERROUS SULFATE
  19. MILK OF MAGNESIA [Concomitant]
     Active Substance: MAGNESIUM HYDROXIDE
  20. CARBOPLATIN. [Suspect]
     Active Substance: CARBOPLATIN
     Indication: LUNG NEOPLASM
     Dosage: ?          OTHER FREQUENCY:ONCE EVERY 3 WEEKS;?
     Route: 042
     Dates: start: 20200203, end: 20200208
  21. AMIODARONE [Concomitant]
     Active Substance: AMIODARONE
  22. FUROSEMIDE. [Concomitant]
     Active Substance: FUROSEMIDE
  23. HUMALOG [Concomitant]
     Active Substance: INSULIN LISPRO

REACTIONS (1)
  - Death [None]

NARRATIVE: CASE EVENT DATE: 20200208
